FAERS Safety Report 17029946 (Version 1)
Quarter: 2019Q4

REPORT INFORMATION
  Report Type: Spontaneous
  Country: US (occurrence: US)
  Receive Date: 20191114
  Receipt Date: 20191114
  Transmission Date: 20200122
  Serious: No
  Sender: FDA-Public Use
  Company Number: US-GLAXOSMITHKLINE-US2019AMR202636

PATIENT
  Sex: Male

DRUGS (1)
  1. NUCALA [Suspect]
     Active Substance: MEPOLIZUMAB
     Indication: ASTHMA
     Dosage: UNK, EVERY 4 WEEKS
     Route: 065
     Dates: start: 2019, end: 201908

REACTIONS (7)
  - Rash [Not Recovered/Not Resolved]
  - Blood test abnormal [Unknown]
  - Blood immunoglobulin E increased [Unknown]
  - Blood albumin decreased [Unknown]
  - Polyp [Not Recovered/Not Resolved]
  - Pain [Unknown]
  - Red blood cell sedimentation rate abnormal [Unknown]
